FAERS Safety Report 14117305 (Version 2)
Quarter: 2017Q4

REPORT INFORMATION
  Report Type: Spontaneous
  Country: US (occurrence: US)
  Receive Date: 20171023
  Receipt Date: 20171107
  Transmission Date: 20180321
  Serious: Yes (Death, Other)
  Sender: FDA-Public Use
  Company Number: US-ASTELLAS-2017US042611

PATIENT
  Age: 88 Year
  Sex: Male
  Weight: 52 kg

DRUGS (14)
  1. SSD [Concomitant]
     Active Substance: SILVER SULFADIAZINE
     Indication: PRODUCT USED FOR UNKNOWN INDICATION
     Dosage: UNK UNK, UNKNOWN FREQ.
     Route: 061
  2. LUPRON [Suspect]
     Active Substance: LEUPROLIDE ACETATE
     Indication: METASTASIS
     Dosage: UNK UNK, UNKNOWN FREQ.
     Route: 065
     Dates: start: 20151125
  3. LUPRON [Suspect]
     Active Substance: LEUPROLIDE ACETATE
     Dosage: UNK UNK, UNKNOWN FREQ.
     Route: 065
     Dates: start: 20161206
  4. XTANDI [Suspect]
     Active Substance: ENZALUTAMIDE
     Indication: PROSTATE CANCER
     Route: 048
     Dates: start: 20160401
  5. XTANDI [Suspect]
     Active Substance: ENZALUTAMIDE
     Indication: METASTASIS
     Route: 048
     Dates: start: 20160705, end: 20171005
  6. LUPRON [Suspect]
     Active Substance: LEUPROLIDE ACETATE
     Dosage: UNK UNK, UNKNOWN FREQ.
     Route: 065
     Dates: start: 20160802
  7. MUPIROCIN. [Concomitant]
     Active Substance: MUPIROCIN
     Indication: PRODUCT USED FOR UNKNOWN INDICATION
     Dosage: UNK UNK, UNKNOWN FREQ.
     Route: 061
  8. FERROUS SULFATE. [Concomitant]
     Active Substance: FERROUS SULFATE
     Indication: PRODUCT USED FOR UNKNOWN INDICATION
     Route: 048
  9. VITAMIN C [Concomitant]
     Active Substance: ASCORBIC ACID
     Indication: PRODUCT USED FOR UNKNOWN INDICATION
     Route: 065
  10. HYDROCODONE BITARTRATE AND ACETAMINOPHEN [Concomitant]
     Active Substance: ACETAMINOPHEN\HYDROCODONE BITARTRATE
     Indication: PRODUCT USED FOR UNKNOWN INDICATION
     Route: 048
  11. LUPRON [Suspect]
     Active Substance: LEUPROLIDE ACETATE
     Dosage: UNK UNK, UNKNOWN FREQ.
     Route: 065
     Dates: start: 20160401
  12. LUPRON [Suspect]
     Active Substance: LEUPROLIDE ACETATE
     Indication: PROSTATE CANCER
     Dosage: UNK UNK, UNKNOWN FREQ.
     Route: 065
     Dates: start: 20150724
  13. LUPRON [Suspect]
     Active Substance: LEUPROLIDE ACETATE
     Dosage: UNK UNK, UNKNOWN FREQ.
     Route: 065
     Dates: start: 20170411
  14. LISINOPRIL. [Concomitant]
     Active Substance: LISINOPRIL
     Indication: PRODUCT USED FOR UNKNOWN INDICATION
     Route: 065

REACTIONS (4)
  - Back pain [Unknown]
  - Malignant neoplasm progression [Fatal]
  - Feeling abnormal [Unknown]
  - Prostatic specific antigen increased [Unknown]

NARRATIVE: CASE EVENT DATE: 20170811
